FAERS Safety Report 23107442 (Version 2)
Quarter: 2023Q4

REPORT INFORMATION
  Report Type: Report from Study
  Country: US (occurrence: US)
  Receive Date: 20231026
  Receipt Date: 20231027
  Transmission Date: 20240110
  Serious: Yes (Other)
  Sender: FDA-Public Use
  Company Number: US-ABBVIE-5462839

PATIENT
  Sex: Female

DRUGS (1)
  1. IMBRUVICA [Suspect]
     Active Substance: IBRUTINIB
     Indication: Chronic lymphocytic leukaemia
     Route: 048
     Dates: start: 20230126

REACTIONS (6)
  - Ear neoplasm [Unknown]
  - Immune system disorder [Unknown]
  - Blood pressure increased [Unknown]
  - Dizziness [Unknown]
  - VIIth nerve injury [Unknown]
  - Balance disorder [Unknown]

NARRATIVE: CASE EVENT DATE: 20230101
